FAERS Safety Report 7744815-0 (Version None)
Quarter: 2011Q3

REPORT INFORMATION
  Report Type: 
  Country: None (occurrence: None)
  Receive Date: 20110912
  Receipt Date: 20110912
  Transmission Date: 20111222
  Serious: Yes (Life-Threatening, Hospitalization)
  Sender: FDA-Public Use
  Company Number: None

PATIENT
  Age: 76 Year
  Sex: Male
  Weight: 87.089 kg

DRUGS (1)
  1. QUININE SULFATE [Suspect]
     Indication: MUSCLE SPASMS
     Dosage: VARIED
     Route: 048
     Dates: start: 20110815, end: 20110905

REACTIONS (9)
  - GOUT [None]
  - PAIN [None]
  - ATRIAL FIBRILLATION [None]
  - BLOOD SODIUM DECREASED [None]
  - ELECTROLYTE IMBALANCE [None]
  - DYSSTASIA [None]
  - MOVEMENT DISORDER [None]
  - SYNCOPE [None]
  - VIRAL INFECTION [None]
